FAERS Safety Report 4376385-1 (Version None)
Quarter: 2004Q2

REPORT INFORMATION
  Report Type: 
  Country: None (occurrence: None)
  Receive Date: 20040608
  Receipt Date: 20040527
  Transmission Date: 20050107
  Serious: Yes (Hospitalization)
  Sender: FDA-Public Use
  Company Number: WAES 0405USA02046

PATIENT
  Age: 85 Year
  Sex: Female

DRUGS (10)
  1. FOSAMAX [Suspect]
     Dosage: PO
     Route: 048
     Dates: start: 19980102, end: 20030603
  2. VIOXX [Suspect]
     Dosage: PO
     Route: 048
     Dates: start: 20010102, end: 20030603
  3. ENBREL [Suspect]
     Indication: RHEUMATOID ARTHRITIS
     Dosage: 25 MG/2XW/SC
     Route: 058
     Dates: start: 20030313, end: 20030603
  4. HYDRODIURIL [Concomitant]
  5. AZATHIOPRINE [Concomitant]
  6. CALCIUM [Concomitant]
  7. HYDROXYCHLOROQUINE SULFATE [Concomitant]
  8. PREDNISONE [Concomitant]
  9. RANITIDINE HYDROCHLORIDE [Concomitant]
  10. TRAMADOL HYDROCHLORIDE [Concomitant]

REACTIONS (4)
  - DYSPNOEA [None]
  - GASTRIC ULCER [None]
  - SYNCOPE [None]
  - UPPER GASTROINTESTINAL HAEMORRHAGE [None]
